FAERS Safety Report 8984740 (Version 1)
Quarter: 2012Q4

REPORT INFORMATION
  Report Type: 
  Country: US (occurrence: US)
  Receive Date: 20121226
  Receipt Date: 20121226
  Transmission Date: 20130627
  Serious: Yes (Hospitalization)
  Sender: FDA-Public Use
  Company Number: US-BAYER-2012-134621

PATIENT
  Age: 49 Year
  Sex: Female
  Weight: 81.63 kg

DRUGS (24)
  1. YAZ [Suspect]
     Indication: PERIMENOPAUSAL SYMPTOMS
  2. LEXAPRO [Concomitant]
     Dosage: 20 mg, UNK
     Dates: start: 20110425
  3. LEXAPRO [Concomitant]
     Dosage: 20 mg, UNK
     Dates: start: 20110525
  4. LEXAPRO [Concomitant]
     Dosage: 20 mg, UNK
     Dates: start: 20110627
  5. TOPIRAMATE [Concomitant]
     Indication: MIGRAINE
     Dosage: 25 mg, UNK
     Dates: start: 20110416
  6. TOPIRAMATE [Concomitant]
     Indication: MIGRAINE
     Dosage: 25 mg, UNK
     Dates: start: 20110514
  7. TOPIRAMATE [Concomitant]
     Indication: MIGRAINE
     Dosage: 25 mg, UNK
     Dates: start: 20110617
  8. ZOLPIDEM [Concomitant]
     Dosage: 10 mg, UNK
     Dates: start: 20110426
  9. ZOLPIDEM [Concomitant]
     Dosage: 10 mg, UNK
     Dates: start: 20110523
  10. ZOLPIDEM [Concomitant]
     Dosage: 10 mg, UNK
     Dates: start: 20110627
  11. BONIVA [Concomitant]
     Dosage: 150 mg, UNK
     Dates: start: 20110515
  12. TIZANIDINE [Concomitant]
     Dosage: 4 mg, UNK
     Dates: start: 20110523
  13. DEXAMETHASONE [Concomitant]
     Dosage: 4 mg, UNK
     Dates: start: 20110611
  14. AMBIEN [Concomitant]
  15. TYLENOL 3 [Concomitant]
  16. ALBUTEROL [Concomitant]
  17. ALENDRONATE SODIUM [Concomitant]
  18. AUGMENTIN [Concomitant]
  19. BUPROPION [Concomitant]
  20. CYCLOBENZAPRINE [Concomitant]
  21. FLUTICASONE [Concomitant]
     Route: 045
  22. PREDNISONE [Concomitant]
  23. CORTISONE [Concomitant]
     Indication: NECK PAIN
  24. CALCIUM WITH VITAMIN D [Concomitant]

REACTIONS (2)
  - Pulmonary embolism [None]
  - Deep vein thrombosis [None]
